FAERS Safety Report 21556607 (Version 1)
Quarter: 2022Q4

REPORT INFORMATION
  Report Type: Spontaneous
  Country: IN (occurrence: IN)
  Receive Date: 20221104
  Receipt Date: 20221104
  Transmission Date: 20230112
  Serious: Yes (Other)
  Sender: FDA-Public Use
  Company Number: IN-PFIZER INC-PV202200094690

PATIENT
  Age: 45 Year
  Sex: Female
  Weight: 52.3 kg

DRUGS (2)
  1. DACOMITINIB [Suspect]
     Active Substance: DACOMITINIB
     Dosage: UNK
     Route: 048
     Dates: start: 20211126
  2. DOXYCYCLINE [Concomitant]
     Active Substance: DOXYCYCLINE

REACTIONS (14)
  - Tumour haemorrhage [Unknown]
  - Pulmonary fibrosis [Unknown]
  - Pruritus [Unknown]
  - Paronychia [Unknown]
  - Dizziness [Unknown]
  - Periarthritis [Unknown]
  - Headache [Unknown]
  - Vomiting [Unknown]
  - Dysuria [Unknown]
  - Eye disorder [Unknown]
  - Imaging procedure abnormal [Unknown]
  - Cholelithiasis [Unknown]
  - Neoplasm progression [Unknown]
  - Skin disorder [Unknown]
